FAERS Safety Report 9570776 (Version 2)
Quarter: 2014Q1

REPORT INFORMATION
  Report Type: Spontaneous
  Country: JP (occurrence: JP)
  Receive Date: 20131001
  Receipt Date: 20140103
  Transmission Date: 20141002
  Serious: Yes (Hospitalization)
  Sender: FDA-Public Use
  Company Number: JP-009507513-1309JPN014031

PATIENT
  Age: 59 Year
  Sex: Female

DRUGS (3)
  1. MK-0000 (001) [Suspect]
  2. COPEGUS [Suspect]
     Indication: CHRONIC HEPATITIS C
     Dosage: DAILY DOSAGE UNKNOWN
     Route: 048
     Dates: start: 201108, end: 201201
  3. PEGASYS [Suspect]
     Indication: CHRONIC HEPATITIS C
     Dosage: DAILY DOSAGE UNKNOWN
     Route: 058
     Dates: start: 201108, end: 201201

REACTIONS (1)
  - Type 1 diabetes mellitus [Recovering/Resolving]
